FAERS Safety Report 5729777-X (Version None)
Quarter: 2008Q2

REPORT INFORMATION
  Report Type: 
  Country: None (occurrence: None)
  Receive Date: 20080501
  Receipt Date: 20080417
  Transmission Date: 20081010
  Serious: Yes (Hospitalization, Other)
  Sender: FDA-Public Use
  Company Number: 2007S1008838

PATIENT
  Age: 30 Year
  Sex: Female

DRUGS (13)
  1. MERCAPTAMINE BITARTRATE (MERCAPTAMTNE BITARTRATE) [Suspect]
     Indication: CYSTINOSIS
     Dosage: DAILY;ORAL   450 MG;3 TIMES A DAY; ORAL
     Route: 048
     Dates: end: 20070126
  2. MERCAPTAMINE BITARTRATE (MERCAPTAMTNE BITARTRATE) [Suspect]
     Indication: CYSTINOSIS
     Dosage: DAILY;ORAL   450 MG;3 TIMES A DAY; ORAL
     Route: 048
     Dates: start: 20070126
  3. MYCOPHENOLATE MOFETIL [Concomitant]
  4. PREDNISONE [Concomitant]
  5. LANSOPRAZOLE [Concomitant]
  6. FUROSEMIDE [Concomitant]
  7. SIMVASTATIN [Concomitant]
  8. ASPIRIN [Concomitant]
  9. LEVOTHYROXINE SODIUM [Concomitant]
  10. ALPHACALCIDOL [Concomitant]
  11. FOLIC ACID [Concomitant]
  12. BISOPROLOL FUMARATE [Concomitant]
  13. PHENYTOIN [Concomitant]

REACTIONS (1)
  - SKIN PAPILLOMA [None]
